FAERS Safety Report 8654253 (Version 2)
Quarter: 2012Q4

REPORT INFORMATION
  Report Type: 
  Country: FR (occurrence: FR)
  Receive Date: 20120709
  Receipt Date: 20121025
  Transmission Date: 20130627
  Serious: No
  Sender: FDA-Public Use
  Company Number: FR-JNJFOC-20120702053

PATIENT
  Age: 42 Year
  Sex: Female

DRUGS (8)
  1. DUROGESIC [Suspect]
     Indication: CANCER PAIN
     Route: 062
     Dates: end: 201207
  2. DUROGESIC [Suspect]
     Indication: CANCER PAIN
     Route: 062
     Dates: start: 20120703
  3. DUROGESIC [Suspect]
     Indication: CANCER PAIN
     Route: 062
  4. ANALGESICS [Concomitant]
     Route: 065
  5. KEPPRA [Concomitant]
     Indication: EPILEPSY
     Route: 048
     Dates: start: 201008
  6. OMEPRAZOLE [Concomitant]
     Indication: PRODUCT USED FOR UNKNOWN INDICATION
     Route: 048
     Dates: start: 201008
  7. DOMPERIDONE [Concomitant]
     Indication: ANTIEMETIC SUPPORTIVE CARE
     Route: 048
     Dates: start: 201209
  8. SOLUPRED [Concomitant]
     Indication: PRODUCT USED FOR UNKNOWN INDICATION
     Route: 048
     Dates: start: 201208

REACTIONS (3)
  - Application site warmth [Unknown]
  - Treatment noncompliance [Unknown]
  - Pain [Unknown]
